FAERS Safety Report 5463012-5 (Version None)
Quarter: 2007Q3

REPORT INFORMATION
  Report Type: 
  Country: None (occurrence: None)
  Receive Date: 20070918
  Receipt Date: 20070918
  Transmission Date: 20080115
  Serious: No
  Sender: FDA-Public Use
  Company Number: None

PATIENT
  Age: 16 Year
  Sex: Male
  Weight: 54.4316 kg

DRUGS (1)
  1. LODRANE D OTC ECR PHARAMCEUTICALS [Suspect]
     Indication: HYPERSENSITIVITY
     Dosage: 12MG BROMPHENIRAMINE ONCE DAILY PO
     Route: 048
     Dates: start: 20070909, end: 20070914

REACTIONS (5)
  - COGNITIVE DISORDER [None]
  - LOSS OF VISUAL CONTRAST SENSITIVITY [None]
  - MYDRIASIS [None]
  - PUPILLARY DISORDER [None]
  - SPEECH DISORDER [None]
